FAERS Safety Report 19732506 (Version 2)
Quarter: 2021Q3

REPORT INFORMATION
  Report Type: Spontaneous
  Country: US (occurrence: US)
  Receive Date: 20210822
  Receipt Date: 20210902
  Transmission Date: 20211014
  Serious: No
  Sender: FDA-Public Use
  Company Number: US-ELI_LILLY_AND_COMPANY-US202107009561

PATIENT
  Age: 33 Year
  Sex: Female

DRUGS (6)
  1. UPTRAVI [Suspect]
     Active Substance: SELEXIPAG
     Dosage: 400 UG, DAILY
     Route: 048
  2. UPTRAVI [Suspect]
     Active Substance: SELEXIPAG
     Dosage: UNK UNK, BID
     Route: 065
  3. UPTRAVI [Suspect]
     Active Substance: SELEXIPAG
     Indication: PULMONARY ARTERIAL HYPERTENSION
     Dosage: UNK UNK, UNKNOWN
     Route: 065
     Dates: end: 202106
  4. UPTRAVI [Suspect]
     Active Substance: SELEXIPAG
     Dosage: UNK UNK, DAILY
     Route: 065
  5. UPTRAVI [Suspect]
     Active Substance: SELEXIPAG
     Dosage: 800 UG, DAILY
     Route: 048
     Dates: start: 20200617
  6. ADCIRCA [Suspect]
     Active Substance: TADALAFIL
     Indication: PULMONARY ARTERIAL HYPERTENSION
     Dosage: 40 MG, DAILY
     Route: 048
     Dates: start: 20190305

REACTIONS (5)
  - Pain in jaw [Unknown]
  - Migraine [Unknown]
  - Nausea [Unknown]
  - Hypersomnia [Unknown]
  - Headache [Unknown]

NARRATIVE: CASE EVENT DATE: 202107
